FAERS Safety Report 6274639-5 (Version None)
Quarter: 2009Q3

REPORT INFORMATION
  Report Type: 
  Country: None (occurrence: None)
  Receive Date: 20090717
  Receipt Date: 20090713
  Transmission Date: 20100115
  Serious: Yes (Death)
  Sender: FDA-Public Use
  Company Number: FABR-1000887

PATIENT
  Age: 63 Year
  Sex: Female

DRUGS (2)
  1. FABRAZYME [Suspect]
     Indication: FABRY'S DISEASE
     Dosage: 50 MG, 1X/W; INTRAVENOUS
     Route: 042
     Dates: start: 20031112
  2. UNSPECIFIED PAIN MEDICATIONS [Concomitant]

REACTIONS (1)
  - DEATH [None]
